FAERS Safety Report 24524723 (Version 1)
Quarter: 2024Q4

REPORT INFORMATION
  Report Type: Spontaneous
  Country: CA (occurrence: CA)
  Receive Date: 20241019
  Receipt Date: 20241019
  Transmission Date: 20250114
  Serious: Yes (Other)
  Sender: CELLTRION
  Company Number: CA-PFIZER INC-202400274889

PATIENT

DRUGS (7)
  1. INFLECTRA [Suspect]
     Active Substance: INFLIXIMAB-DYYB
     Indication: Colitis ulcerative
     Dosage: 400 MG, Q0,2,6 WEEKS, THEN EVERY 8 WEEKS
     Dates: start: 20221006, end: 20230110
  2. INFLECTRA [Suspect]
     Active Substance: INFLIXIMAB-DYYB
     Dosage: 400 MG, Q0,2,6 WEEKS, THEN EVERY 8 WEEKS
     Dates: start: 20240820
  3. INFLECTRA [Suspect]
     Active Substance: INFLIXIMAB-DYYB
     Dosage: 400 MG, AFTER 7 WEEKS AND 1 DAY (Q 0,2,6 WEEKS, THEN EVERY 8 WEEKS)
     Dates: start: 20241009
  4. CALCIUM [Concomitant]
     Active Substance: CALCIUM
     Dosage: UNK
  5. FINASTERIDE [Concomitant]
     Active Substance: FINASTERIDE
     Dosage: UNK
  6. MESALAMINE [Concomitant]
     Active Substance: MESALAMINE
     Dosage: UNK
  7. CHOLECALCIFEROL [Concomitant]
     Active Substance: CHOLECALCIFEROL
     Dosage: UNK

REACTIONS (2)
  - Abortion spontaneous [Recovered/Resolved]
  - Off label use [Unknown]

NARRATIVE: CASE EVENT DATE: 20240101
